FAERS Safety Report 10155595 (Version 1)
Quarter: 2014Q2

REPORT INFORMATION
  Report Type: Spontaneous
  Country: US (occurrence: US)
  Receive Date: 20140506
  Receipt Date: 20140506
  Transmission Date: 20141212
  Serious: No
  Sender: FDA-Public Use
  Company Number: US-FRI-1000066903

PATIENT
  Sex: Female

DRUGS (3)
  1. FETZIMA [Suspect]
     Indication: DEPRESSION
     Dosage: 20 MG
     Route: 048
     Dates: start: 201402, end: 2014
  2. FETZIMA [Suspect]
     Indication: DEPRESSION
     Dosage: 40 MG
     Route: 048
     Dates: start: 2014, end: 2014
  3. KLONOPIN [Concomitant]
     Indication: ANXIETY
     Dosage: 0.5 MG EVERY 6 HOURS PRN

REACTIONS (2)
  - Gastrointestinal haemorrhage [Recovered/Resolved]
  - Epistaxis [Recovered/Resolved]
